FAERS Safety Report 8080263-4 (Version None)
Quarter: 2012Q1

REPORT INFORMATION
  Report Type: 
  Country: None (occurrence: None)
  Receive Date: 20120130
  Receipt Date: 20120120
  Transmission Date: 20120608
  Serious: Yes (Other)
  Sender: FDA-Public Use
  Company Number: US-BAYER-2011-109333

PATIENT
  Age: 38 Year
  Sex: Female
  Weight: 66 kg

DRUGS (8)
  1. ZYRTEC [Concomitant]
     Indication: HYPERSENSITIVITY
     Dosage: UNK UNK, PRN, DAILY
     Route: 048
  2. PROVENTIL [Concomitant]
     Dosage: UNK
     Route: 055
     Dates: start: 20091215
  3. YAZ [Suspect]
     Indication: WEIGHT FLUCTUATION
  4. CHERATUSSIN AC [Concomitant]
     Dosage: UNK
     Route: 048
     Dates: start: 20091215
  5. YAZ [Suspect]
     Indication: CONTRACEPTION
     Dosage: UNK
     Route: 048
     Dates: start: 20060101, end: 20090101
  6. AMOXICILLIN [Concomitant]
     Dosage: UNK
     Route: 048
     Dates: start: 20091201
  7. YAZ [Suspect]
     Indication: HORMONE LEVEL ABNORMAL
  8. YAZ [Suspect]
     Indication: ACNE

REACTIONS (3)
  - DEEP VEIN THROMBOSIS [None]
  - THROMBOPHLEBITIS [None]
  - PAIN [None]
